FAERS Safety Report 4645873-2 (Version None)
Quarter: 2005Q2

REPORT INFORMATION
  Report Type: 
  Country: None (occurrence: None)
  Receive Date: 20050425
  Receipt Date: 20050411
  Transmission Date: 20051028
  Serious: Yes (Death)
  Sender: FDA-Public Use
  Company Number: HQWYE013213APR05

PATIENT
  Age: 79 Year
  Sex: Female
  Weight: 68.1 kg

DRUGS (5)
  1. PROTONIX [Suspect]
     Indication: ULCER HAEMORRHAGE
     Dosage: ORAL
     Route: 048
     Dates: start: 20050311, end: 20050404
  2. LEVOTHYROXINE SODIUM [Concomitant]
  3. SULAR [Concomitant]
  4. MULTIVITAMINS (ASCORBIC ACID/ERGOCALCIFEROL/FOLIC ACID/NICOTINAMIDE/PA [Concomitant]
  5. STOOL SOFTNER (DOCUSATE SODIUM) [Concomitant]

REACTIONS (7)
  - ANOREXIA [None]
  - CONSTIPATION [None]
  - DIARRHOEA [None]
  - FAECES DISCOLOURED [None]
  - ULCER HAEMORRHAGE [None]
  - WEIGHT DECREASED [None]
  - WRONG TECHNIQUE IN DRUG USAGE PROCESS [None]
